FAERS Safety Report 5806033-2 (Version None)
Quarter: 2008Q3

REPORT INFORMATION
  Report Type: 
  Country: None (occurrence: None)
  Receive Date: 20080710
  Receipt Date: 20080704
  Transmission Date: 20090109
  Serious: Yes (Hospitalization, Other)
  Sender: FDA-Public Use
  Company Number: KR-ASTRAZENECA-2008AC01706

PATIENT
  Age: 31 Year
  Sex: Female

DRUGS (1)
  1. PROPOFOL [Suspect]
     Indication: ANAESTHESIA

REACTIONS (2)
  - MYOCLONIC EPILEPSY [None]
  - STATUS EPILEPTICUS [None]
